FAERS Safety Report 20109878 (Version 2)
Quarter: 2022Q1

REPORT INFORMATION
  Report Type: Spontaneous
  Country: US (occurrence: US)
  Receive Date: 20211124
  Receipt Date: 20220107
  Transmission Date: 20220423
  Serious: Yes (Hospitalization)
  Sender: FDA-Public Use
  Company Number: US-RIGEL PHARMACEUTICALS, INC.-2021FOS000737

PATIENT
  Sex: Female

DRUGS (2)
  1. TAVALISSE [Suspect]
     Active Substance: FOSTAMATINIB
     Indication: Pulmonary mass
     Dosage: 100 MG, BID
     Route: 048
     Dates: start: 20210802
  2. TAVALISSE [Suspect]
     Active Substance: FOSTAMATINIB
     Dosage: 100 MG, BID
     Route: 048
     Dates: start: 20210802

REACTIONS (10)
  - Unevaluable event [Unknown]
  - Peripheral swelling [Unknown]
  - Peripheral coldness [Unknown]
  - Muscle tightness [Unknown]
  - Off label use [Unknown]
  - Urinary tract infection [Unknown]
  - Cystitis [Unknown]
  - Dyspnoea [Unknown]
  - Diarrhoea [Unknown]
  - Nausea [Unknown]

NARRATIVE: CASE EVENT DATE: 20210101
